FAERS Safety Report 9807069 (Version 3)
Quarter: 2014Q2

REPORT INFORMATION
  Report Type: Spontaneous
  Country: FR (occurrence: FR)
  Receive Date: 20140110
  Receipt Date: 20140429
  Transmission Date: 20141212
  Serious: Yes (Hospitalization)
  Sender: FDA-Public Use
  Company Number: FR-ROCHE-1329718

PATIENT
  Age: 75 Year
  Sex: Female

DRUGS (9)
  1. ZELBORAF [Suspect]
     Indication: METASTATIC MALIGNANT MELANOMA
     Route: 048
     Dates: start: 20130927, end: 20131031
  2. CRESTOR [Concomitant]
     Dosage: 10 MG
     Route: 048
     Dates: end: 20131031
  3. COOLMETEC [Concomitant]
     Dosage: 20 MG/12.5 MG
     Route: 048
     Dates: start: 2010, end: 20131031
  4. SODIUM BICARBONATE [Concomitant]
  5. PARACETAMOL [Concomitant]
  6. IMODIUM [Concomitant]
  7. STILNOX [Concomitant]
     Dosage: 1 TABLET AT BED TIME
     Route: 065
  8. CORTANCYL [Concomitant]
     Route: 065
     Dates: end: 20131127
  9. SMECTA [Concomitant]
     Dosage: 1 SACHET
     Route: 065

REACTIONS (4)
  - Tubulointerstitial nephritis [Recovered/Resolved]
  - Hyperkeratosis [Recovered/Resolved]
  - Eosinophilia [Recovered/Resolved]
  - Folliculitis [Recovered/Resolved]
